FAERS Safety Report 5581293-4 (Version None)
Quarter: 2008Q1

REPORT INFORMATION
  Report Type: 
  Country: None (occurrence: None)
  Receive Date: 20080104
  Receipt Date: 20071221
  Transmission Date: 20080703
  Serious: Yes (Other)
  Sender: FDA-Public Use
  Company Number: US-JNJFOC-20071102119

PATIENT
  Sex: Female
  Weight: 86.64 kg

DRUGS (2)
  1. ORTHO EVRA [Suspect]
     Indication: DRUG USE FOR UNKNOWN INDICATION
     Route: 062
  2. ORTHO EVRA [Suspect]
     Route: 062

REACTIONS (1)
  - VARICOSE VEIN [None]
